FAERS Safety Report 4334722-8 (Version None)
Quarter: 2004Q2

REPORT INFORMATION
  Report Type: 
  Country: None (occurrence: None)
  Receive Date: 20040407
  Receipt Date: 20040407
  Transmission Date: 20050107
  Serious: No
  Sender: FDA-Public Use
  Company Number: None

PATIENT
  Age: 84 Year
  Sex: Male
  Weight: 56.6996 kg

DRUGS (7)
  1. NAMENDA [Suspect]
     Indication: DEMENTIA ALZHEIMER'S TYPE
     Dosage: 10MG/5MG DAILY ORAL
     Route: 048
     Dates: start: 20040310, end: 20040330
  2. PREDNISONE [Concomitant]
  3. RABEPRAZOLE SODIUM [Concomitant]
  4. PLAVIX [Concomitant]
  5. TRIAMPTERINE [Concomitant]
  6. AVALIDE [Concomitant]
  7. VITAMIN E [Concomitant]

REACTIONS (3)
  - BLOOD BILIRUBIN INCREASED [None]
  - DIZZINESS [None]
  - NAUSEA [None]
